FAERS Safety Report 22297282 (Version 1)
Quarter: 2023Q2

REPORT INFORMATION
  Report Type: Report from Study
  Country: SE (occurrence: SE)
  Receive Date: 20230509
  Receipt Date: 20230509
  Transmission Date: 20230722
  Serious: Yes (Hospitalization, Other)
  Sender: FDA-Public Use
  Company Number: SE-CELLTRION INC.-2023SE009457

PATIENT

DRUGS (12)
  1. INFLIXIMAB [Suspect]
     Active Substance: INFLIXIMAB
     Indication: Colitis ulcerative
     Dosage: RESCUE, MAYBE CONTINUING WITH INDUCTION
     Dates: start: 20200601, end: 20200615
  2. HUMIRA [Suspect]
     Active Substance: ADALIMUMAB
     Indication: Colitis ulcerative
     Dosage: 40 MG, Q2WEEKS
     Route: 058
     Dates: start: 20200630, end: 20200714
  3. AZATHIOPRINE [Suspect]
     Active Substance: AZATHIOPRINE
     Indication: Colitis ulcerative
     Dosage: 150 MILLIGRAM,QD
     Route: 048
     Dates: start: 20130424, end: 20180626
  4. PREDNISOLONE [Concomitant]
     Active Substance: PREDNISOLONE
     Indication: Colitis ulcerative
     Dosage: 40 MG QD
     Route: 048
     Dates: start: 20200522, end: 20200526
  5. PREDNISOLONE [Concomitant]
     Active Substance: PREDNISOLONE
     Dosage: 30 MILLIGRAM
     Dates: start: 20200722
  6. PREDNISOLONE [Concomitant]
     Active Substance: PREDNISOLONE
     Dosage: 40 MG
     Route: 048
     Dates: start: 20200606, end: 20200717
  7. CIPROFLOXACIN [Concomitant]
     Active Substance: CIPROFLOXACIN
     Indication: Colitis ulcerative
     Dosage: 1000 MILLIGRAM, QD
     Route: 048
     Dates: start: 20200531, end: 20200610
  8. BETAPRED [Concomitant]
     Active Substance: BETAMETHASONE SODIUM PHOSPHATE
     Indication: Colitis ulcerative
     Dosage: 8 MILLIGRAM,
     Dates: start: 20200526, end: 20200605
  9. PENTASA [Concomitant]
     Active Substance: MESALAMINE
     Indication: Colitis ulcerative
     Dosage: 1 GRAM
     Route: 054
     Dates: start: 20220705
  10. PENTASA [Concomitant]
     Active Substance: MESALAMINE
     Dosage: 4 GRAM
     Route: 048
     Dates: start: 20130419, end: 20200324
  11. PENTASA [Concomitant]
     Active Substance: MESALAMINE
     Dosage: 8 MG
     Route: 048
     Dates: start: 20200514
  12. METRONIDAZOLE [Concomitant]
     Active Substance: METRONIDAZOLE
     Indication: Colitis ulcerative
     Dosage: 1200 MG
     Route: 048
     Dates: start: 20200531, end: 20200610

REACTIONS (1)
  - Colitis ulcerative [Recovered/Resolved]

NARRATIVE: CASE EVENT DATE: 20200716
